FAERS Safety Report 5837300-4 (Version None)
Quarter: 2008Q3

REPORT INFORMATION
  Report Type: 
  Country: None (occurrence: None)
  Receive Date: 20080807
  Receipt Date: 20080729
  Transmission Date: 20090109
  Serious: Yes (Hospitalization, Other)
  Sender: FDA-Public Use
  Company Number: US-ELI_LILLY_AND_COMPANY-US200807001435

PATIENT
  Sex: Male

DRUGS (29)
  1. HUMULIN R [Suspect]
     Dosage: 25 U, WITH MEALS
     Route: 058
     Dates: start: 20030101
  2. HUMULIN R [Suspect]
     Dosage: 25 U, AT BEDTIME
     Route: 058
     Dates: start: 20030101
  3. LANTUS [Concomitant]
     Dosage: 100 U, EACH MORNING OR 2/D
     Route: 058
  4. COUMADIN [Concomitant]
     Dosage: 5 MG, UNK
  5. PHOSLO [Concomitant]
     Dosage: 5667 MG, 3/D WITH MEALS
  6. PACERONE [Concomitant]
     Dosage: 200 MG, 2/D
  7. NORVASC [Concomitant]
     Dosage: 5 MG, 2/D
  8. LYRICA [Concomitant]
     Dosage: 100 MG, 2/D
  9. CAPOTEN [Concomitant]
     Dosage: 25 MG, 3/D
  10. VYTORIN [Concomitant]
     Dosage: UNK, DAILY (1/D)
  11. FLEXERIL [Concomitant]
     Dosage: 10 MG, DAILY (1/D) AT BEDTIME
  12. PLAVIX [Concomitant]
     Dosage: 75 MG, DAILY (1/D)
  13. LEVOTHROID [Concomitant]
     Dosage: 0.05 MG, OTHER
  14. QUESTRAN [Concomitant]
     Dosage: 1 TSP, 4/D
  15. LASIX [Concomitant]
     Dosage: 40 MG, 2/D
  16. ASPIRIN [Concomitant]
     Dosage: 81 MG, DAILY (1/D)
  17. XANAX [Concomitant]
     Dosage: 0.5 MG, DAILY (1/D) AT BEDTIME
  18. ARANESP [Concomitant]
     Dosage: 25 UG, UNK
     Route: 058
  19. AMBIEN [Concomitant]
     Dosage: 12.5 MG, AS NEEDED AT BEDTIME
  20. LOMOTIL [Concomitant]
     Dosage: 0.025 MG, AS NEEDED
  21. ZYRTEC [Concomitant]
     Dosage: UNK, 2/D AS NEEDED
  22. ULTRACET [Concomitant]
     Dosage: 100 MG, EVERY 4 HRS PRN
  23. ANTIBIOTICS [Concomitant]
     Dosage: 2000 MG, AS NEEDED
  24. ASCORBIC ACID [Concomitant]
     Dosage: 500 MG, 2/D
  25. VITAMIN B COMPLEX CAP [Concomitant]
     Dosage: UNK, DAILY (1/D)
  26. LUTEINE [Concomitant]
     Dosage: 6 MG, DAILY (1/D)
  27. TETANUS VACCINE [Concomitant]
     Dates: start: 20061101
  28. PNEUMUNE [Concomitant]
     Dates: start: 20061101
  29. FLU [Concomitant]
     Dates: start: 20071101

REACTIONS (40)
  - ABASIA [None]
  - ANAEMIA [None]
  - ANGINA PECTORIS [None]
  - ANGIOPLASTY [None]
  - ANXIETY [None]
  - BLOOD BLISTER [None]
  - BLOOD GLUCOSE INCREASED [None]
  - CATHETERISATION CARDIAC [None]
  - CEREBRAL THROMBOSIS [None]
  - COLONIC POLYP [None]
  - CONTUSION [None]
  - CORONARY ARTERY DISEASE [None]
  - DEHYDRATION [None]
  - DIABETIC NEUROPATHY [None]
  - DIABETIC RETINOPATHY [None]
  - DIARRHOEA [None]
  - DIZZINESS [None]
  - DRUG HYPERSENSITIVITY [None]
  - DRUG INEFFECTIVE [None]
  - DYSPHONIA [None]
  - DYSPNOEA [None]
  - GASTRIC ULCER [None]
  - HEADACHE [None]
  - HEMIANOPIA [None]
  - HYPOAESTHESIA [None]
  - HYPOTHYROIDISM [None]
  - INTESTINAL FUNCTIONAL DISORDER [None]
  - ISCHAEMIC STROKE [None]
  - LIMB INJURY [None]
  - LISTLESS [None]
  - MYOCARDIAL ISCHAEMIA [None]
  - NASAL CONGESTION [None]
  - OEDEMA PERIPHERAL [None]
  - RENAL DISORDER [None]
  - RETINAL OEDEMA [None]
  - SINUS DISORDER [None]
  - SKIN EXFOLIATION [None]
  - SLEEP APNOEA SYNDROME [None]
  - STENT PLACEMENT [None]
  - THROMBOSIS [None]
